FAERS Safety Report 10974650 (Version 1)
Quarter: 2015Q1

REPORT INFORMATION
  Report Type: Spontaneous
  Country: US (occurrence: None)
  Receive Date: 20150226
  Receipt Date: 20150226
  Transmission Date: 20150721
  Serious: Yes (Hospitalization)
  Sender: FDA-Public Use
  Company Number: TPA2009A01093

PATIENT
  Age: 70 Year
  Sex: Female
  Weight: 97.98 kg

DRUGS (15)
  1. COLCHICINE. [Concomitant]
     Active Substance: COLCHICINE
  2. ASPIRIN. [Concomitant]
     Active Substance: ASPIRIN
  3. VITAMIN D (ERGOCALCIFEROL) [Concomitant]
     Active Substance: ERGOCALCIFEROL
  4. FISH OIL [Concomitant]
     Active Substance: FISH OIL
  5. ULORIC [Suspect]
     Active Substance: FEBUXOSTAT
     Indication: GOUT
     Dosage: 1 IN 1 D
     Route: 048
     Dates: start: 20090312
  6. LIDOCAINE WITH EPINEPHRINE [Suspect]
     Active Substance: EPINEPHRINE BITARTRATE\LIDOCAINE HYDROCHLORIDE
     Indication: ANAESTHESIA PROCEDURE
     Dates: start: 20090505, end: 20090505
  7. LIDOCAINE WITH EPINEPHRINE [Suspect]
     Active Substance: EPINEPHRINE BITARTRATE\LIDOCAINE HYDROCHLORIDE
     Indication: DENTAL CARE
     Dates: start: 20090505, end: 20090505
  8. CALCIUM [Concomitant]
     Active Substance: CALCIUM
  9. FUROSEMIDE. [Concomitant]
     Active Substance: FUROSEMIDE
  10. FOSAMAX [Concomitant]
     Active Substance: ALENDRONATE SODIUM
  11. NEXIUM [Concomitant]
     Active Substance: ESOMEPRAZOLE MAGNESIUM
  12. VITAMIN C [Concomitant]
     Active Substance: ASCORBIC ACID
  13. SOTALOL. [Concomitant]
     Active Substance: SOTALOL
  14. VYTORIN (SIMVASTATIN, EZETIMIBE) [Concomitant]
  15. MVI (VITAMINS NOS) [Concomitant]

REACTIONS (2)
  - Myocardial infarction [None]
  - Chest pain [None]

NARRATIVE: CASE EVENT DATE: 20090505
